FAERS Safety Report 6388891-9 (Version None)
Quarter: 2009Q4

REPORT INFORMATION
  Report Type: 
  Country: None (occurrence: None)
  Receive Date: 20091005
  Receipt Date: 20090924
  Transmission Date: 20100525
  Serious: Yes (Other)
  Sender: FDA-Public Use
  Company Number: AU-ELI_LILLY_AND_COMPANY-AU200909005447

PATIENT
  Age: 53 Year
  Sex: Male

DRUGS (3)
  1. CYMBALTA [Suspect]
     Dosage: 30 MG, DAILY (1/D)
     Route: 065
     Dates: start: 20090604, end: 20090601
  2. CYMBALTA [Suspect]
     Dosage: 60 MG, DAILY (1/D)
     Route: 065
     Dates: start: 20090630
  3. LOVAZA [Concomitant]
     Dosage: UNK, 4/D
     Route: 065

REACTIONS (1)
  - EJECTION FRACTION DECREASED [None]
